FAERS Safety Report 24618540 (Version 3)
Quarter: 2025Q1

REPORT INFORMATION
  Report Type: Report from Study
  Country: US (occurrence: US)
  Receive Date: 20241114
  Receipt Date: 20250303
  Transmission Date: 20250409
  Serious: Yes (Hospitalization, Other)
  Sender: TAKEDA
  Company Number: US-TAKEDA-2021TUS000482

PATIENT
  Sex: Male

DRUGS (5)
  1. TEDUGLUTIDE [Suspect]
     Active Substance: TEDUGLUTIDE
     Indication: Short-bowel syndrome
     Dosage: UNK UNK, QD
     Dates: start: 20201007
  2. TEDUGLUTIDE [Suspect]
     Active Substance: TEDUGLUTIDE
     Dosage: UNK UNK, QD
  3. TEDUGLUTIDE [Suspect]
     Active Substance: TEDUGLUTIDE
     Dosage: UNK UNK, QD
  4. TEDUGLUTIDE [Suspect]
     Active Substance: TEDUGLUTIDE
  5. TPN [Concomitant]
     Active Substance: AMINO ACIDS\DEXTROSE\ELECTROLYTES NOS\SOYBEAN OIL

REACTIONS (10)
  - Frequent bowel movements [Recovering/Resolving]
  - Atypical pneumonia [Unknown]
  - Diarrhoea [Recovered/Resolved]
  - Gastrointestinal wall thickening [Recovering/Resolving]
  - Weight abnormal [Recovering/Resolving]
  - Increased appetite [Unknown]
  - Product distribution issue [Unknown]
  - Product dose omission issue [Unknown]
  - Illness [Recovering/Resolving]
  - Faeces hard [Unknown]
